FAERS Safety Report 4436300-9 (Version None)
Quarter: 2004Q3

REPORT INFORMATION
  Report Type: 
  Country: None (occurrence: None)
  Receive Date: 20040830
  Receipt Date: 20040719
  Transmission Date: 20050211
  Serious: No
  Sender: FDA-Public Use
  Company Number: US-BRISTOL-MYERS SQUIBB COMPANY-12645123

PATIENT
  Age: 53 Year
  Sex: Male

DRUGS (6)
  1. ERBITUX [Suspect]
     Indication: COLON CANCER
     Dosage: 400 MG/M2.  DOSE HELD ON 19-JUL-2004.
     Route: 042
     Dates: start: 20040712, end: 20040712
  2. ATROPINE [Concomitant]
     Indication: PREMEDICATION
  3. DEXAMETHASONE [Concomitant]
     Indication: PREMEDICATION
     Dates: start: 20040712, end: 20040712
  4. LORAZEPAM [Concomitant]
     Indication: PREMEDICATION
     Dates: start: 20040712, end: 20040712
  5. ONDANSETRON [Concomitant]
     Indication: PREMEDICATION
     Dates: start: 20040712, end: 20040712
  6. IRINOTECAN [Concomitant]
     Dates: start: 20040712, end: 20040712

REACTIONS (1)
  - DERMATITIS ACNEIFORM [None]
